FAERS Safety Report 22183697 (Version 3)
Quarter: 2023Q2

REPORT INFORMATION
  Report Type: Spontaneous
  Country: IN (occurrence: IN)
  Receive Date: 20230406
  Receipt Date: 20230421
  Transmission Date: 20230722
  Serious: Yes (Life-Threatening, Hospitalization, Other)
  Sender: FDA-Public Use
  Company Number: IN-SA-2023SA098815

PATIENT
  Age: 20 Year
  Sex: Male

DRUGS (5)
  1. CLOBAZAM [Suspect]
     Active Substance: CLOBAZAM
     Indication: Seizure
     Dosage: 5 MG, QD
     Route: 065
  2. LEVETIRACETAM [Suspect]
     Active Substance: LEVETIRACETAM
     Indication: Seizure
     Dosage: 500 MG, BID
     Route: 048
  3. LEVETIRACETAM [Suspect]
     Active Substance: LEVETIRACETAM
     Dosage: 1500 MG, BID, INCREASED TO 1500 MG TWICE DAILY, FOUR YEARS LATER
     Route: 048
  4. PHENYTOIN [Suspect]
     Active Substance: PHENYTOIN
     Indication: Seizure
     Dosage: 300 MG, QD
     Route: 048
  5. PHENYTOIN [Suspect]
     Active Substance: PHENYTOIN
     Dosage: 300 MG, QD
     Route: 048

REACTIONS (17)
  - Tubulointerstitial nephritis [Recovering/Resolving]
  - Pyrexia [Recovering/Resolving]
  - Asthenia [Recovering/Resolving]
  - Eosinophilia [Recovering/Resolving]
  - Renal impairment [Recovering/Resolving]
  - Nephropathy [Recovering/Resolving]
  - Pulmonary oedema [Recovering/Resolving]
  - Productive cough [Recovering/Resolving]
  - Dyspnoea exertional [Recovering/Resolving]
  - Dyspnoea at rest [Recovering/Resolving]
  - Orthopnoea [Recovering/Resolving]
  - Dyspnoea paroxysmal nocturnal [Recovering/Resolving]
  - Rales [Recovering/Resolving]
  - Productive cough [Recovering/Resolving]
  - Lung opacity [Recovering/Resolving]
  - Metabolic acidosis [Recovering/Resolving]
  - Hypervolaemia [Recovering/Resolving]
